FAERS Safety Report 8871227 (Version 1)
Quarter: 2012Q4

REPORT INFORMATION
  Report Type: 
  Country: US (occurrence: US)
  Receive Date: 20121026
  Receipt Date: 20121026
  Transmission Date: 20130627
  Serious: No
  Sender: FDA-Public Use
  Company Number: US-AMGEN-USASP2012042157

PATIENT
  Age: 79 Year
  Sex: Female

DRUGS (1)
  1. ENBREL [Suspect]
     Indication: RHEUMATOID ARTHRITIS
     Dosage: 50 mg, qwk
     Dates: start: 20111229, end: 201202

REACTIONS (7)
  - Blood glucose increased [Recovered/Resolved]
  - Peripheral coldness [Recovered/Resolved]
  - Fatigue [Recovered/Resolved]
  - Nightmare [Recovered/Resolved]
  - Abdominal discomfort [Recovered/Resolved]
  - Diarrhoea [Recovered/Resolved]
  - Pruritus generalised [Recovered/Resolved]
